FAERS Safety Report 20984171 (Version 1)
Quarter: 2022Q2

REPORT INFORMATION
  Report Type: Spontaneous
  Country: GB (occurrence: GB)
  Receive Date: 20220621
  Receipt Date: 20220621
  Transmission Date: 20220721
  Serious: Yes (Other)
  Sender: FDA-Public Use
  Company Number: GB-MHRA-TPP33406900C3817669YC1654628881158

PATIENT
  Age: 36 Year
  Sex: Female
  Weight: 99 kg

DRUGS (4)
  1. NAPROXEN [Suspect]
     Active Substance: NAPROXEN
     Indication: Ill-defined disorder
     Dosage: UNK
     Route: 065
     Dates: start: 20220601
  2. DEPO-PROVERA [Concomitant]
     Active Substance: MEDROXYPROGESTERONE ACETATE
     Indication: Ill-defined disorder
     Dosage: UNK (USE AS DIRECTED)
     Route: 065
     Dates: start: 20210727
  3. FOLIC ACID [Concomitant]
     Active Substance: FOLIC ACID
     Indication: Ill-defined disorder
     Dosage: UNK (TAKE ONE DAILY)
     Route: 065
     Dates: start: 20220519
  4. NAPROXEN [Concomitant]
     Active Substance: NAPROXEN
     Indication: Ill-defined disorder
     Dosage: UNK (TAKE ONE TWICE DAILY WITRH FOOD)
     Route: 065
     Dates: start: 20211231, end: 20220601

REACTIONS (1)
  - Enteritis [Recovering/Resolving]

NARRATIVE: CASE EVENT DATE: 20220607
